FAERS Safety Report 7414239-4 (Version None)
Quarter: 2011Q2

REPORT INFORMATION
  Report Type: 
  Country: None (occurrence: None)
  Receive Date: 20110414
  Receipt Date: 20110412
  Transmission Date: 20111010
  Serious: Yes (Other)
  Sender: FDA-Public Use
  Company Number: JP-PFIZER INC-2011079729

PATIENT
  Age: 75 Year
  Sex: Female
  Weight: 48 kg

DRUGS (9)
  1. SELARA [Suspect]
     Indication: HYPERTENSION
     Dosage: 50 MG, 1X/DAY
     Dates: start: 20090113
  2. ASPIRIN [Concomitant]
     Dosage: UNK
     Route: 048
  3. MEVALOTIN [Concomitant]
     Dosage: UNK
     Route: 048
  4. ACTOS [Concomitant]
     Dosage: UNK
     Route: 048
  5. AMARYL [Concomitant]
     Dosage: UNK
     Route: 048
     Dates: start: 20090317
  6. BLOPRESS [Concomitant]
     Indication: HYPERTENSION
     Dosage: UNK
     Route: 048
  7. GLUCOBAY [Concomitant]
     Dosage: UNK
     Route: 048
  8. PANALDINE [Concomitant]
     Dosage: UNK
     Route: 048
  9. ATELEC [Concomitant]
     Indication: HYPERTENSION
     Dosage: UNK
     Route: 048

REACTIONS (1)
  - DIABETES MELLITUS [None]
